FAERS Safety Report 8417488-1 (Version None)
Quarter: 2012Q2

REPORT INFORMATION
  Report Type: 
  Country: None (occurrence: None)
  Receive Date: 20120606
  Receipt Date: 20120528
  Transmission Date: 20120825
  Serious: Yes (Hospitalization)
  Sender: FDA-Public Use
  Company Number: SE-BAXTER-2012BAX006917

PATIENT
  Sex: Female
  Weight: 55 kg

DRUGS (3)
  1. CYCLOPHOSPHAMIDE [Suspect]
     Route: 042
     Dates: start: 20120416
  2. FLUOROURACIL [Suspect]
     Route: 042
     Dates: start: 20120416
  3. EPIRUBICIN HYDROCHLORIDE [Suspect]
     Route: 042
     Dates: start: 20120416

REACTIONS (1)
  - DEVICE RELATED INFECTION [None]
